FAERS Safety Report 7313684-5 (Version None)
Quarter: 2011Q1

REPORT INFORMATION
  Report Type: 
  Country: None (occurrence: None)
  Receive Date: 20110225
  Receipt Date: 20110221
  Transmission Date: 20110831
  Serious: Yes (Other)
  Sender: FDA-Public Use
  Company Number: JP-PFIZER INC-2010174004

PATIENT
  Age: 68 Year
  Sex: Female
  Weight: 40 kg

DRUGS (5)
  1. FLUOROURACIL [Concomitant]
     Indication: BREAST CANCER
     Dosage: 650 MG, UNK
     Route: 041
     Dates: start: 20100823, end: 20101111
  2. FARMORUBICIN [Suspect]
     Indication: BREAST CANCER
     Dosage: 80 MG, UNK
     Route: 041
     Dates: start: 20100823
  3. FARMORUBICIN [Suspect]
     Dosage: 40 MG, UNK
     Route: 041
     Dates: end: 20101111
  4. TRASTUZUMAB [Concomitant]
     Indication: BREAST CANCER
     Dosage: 80 MG, WEEKLY
     Route: 041
     Dates: start: 20100809
  5. ENDOXAN [Concomitant]
     Indication: BREAST CANCER
     Dosage: 50 MG, 2X/DAY
     Route: 048
     Dates: start: 20100823, end: 20101111

REACTIONS (1)
  - INTERSTITIAL LUNG DISEASE [None]
